FAERS Safety Report 7081563-7 (Version None)
Quarter: 2010Q4

REPORT INFORMATION
  Report Type: 
  Country: None (occurrence: None)
  Receive Date: 20101025
  Receipt Date: 20101009
  Transmission Date: 20110411
  Serious: Yes (Death)
  Sender: FDA-Public Use
  Company Number: MPS1-1000383

PATIENT
  Age: 1 Year
  Sex: Male

DRUGS (1)
  1. ALDURAZYME [Suspect]
     Indication: MUCOPOLYSACCHARIDOSIS
     Dates: start: 20091201

REACTIONS (5)
  - DIARRHOEA [None]
  - DISEASE COMPLICATION [None]
  - GRAFT VERSUS HOST DISEASE [None]
  - PYREXIA [None]
  - VOMITING [None]
